FAERS Safety Report 15143389 (Version 1)
Quarter: 2018Q3

REPORT INFORMATION
  Report Type: Spontaneous
  Country: RO (occurrence: RO)
  Receive Date: 20180713
  Receipt Date: 20180713
  Transmission Date: 20181010
  Serious: Yes (Hospitalization, Other)
  Sender: FDA-Public Use
  Company Number: RO-AUROBINDO-AUR-APL-2018-030208

PATIENT
  Age: 31 Week
  Sex: Female
  Weight: 1.49 kg

DRUGS (21)
  1. ALBUMIN NOS [Concomitant]
     Indication: ESCHERICHIA SEPSIS
  2. PENTOXIFYLLINE. [Concomitant]
     Active Substance: PENTOXIFYLLINE
     Indication: SEPSIS NEONATAL
  3. VANCOMYCIN [Concomitant]
     Active Substance: VANCOMYCIN
     Indication: BACTERIAL SEPSIS
     Dosage: UNK
     Route: 065
  4. VANCOMYCIN [Concomitant]
     Active Substance: VANCOMYCIN
     Indication: SEPSIS NEONATAL
  5. PLATELETS [Concomitant]
     Active Substance: HUMAN PLATELET, ALLOGENIC
     Indication: SEPSIS NEONATAL
  6. AMIKACIN. [Concomitant]
     Active Substance: AMIKACIN
     Indication: ESCHERICHIA SEPSIS
     Dosage: UNK
     Route: 065
  7. FLUCONAZOLE. [Suspect]
     Active Substance: FLUCONAZOLE
     Indication: SEPSIS NEONATAL
  8. MEROPENEM. [Suspect]
     Active Substance: MEROPENEM
     Indication: ESCHERICHIA SEPSIS
  9. PENTOXIFYLLINE. [Concomitant]
     Active Substance: PENTOXIFYLLINE
     Indication: ANTIBIOTIC THERAPY
     Dosage: UNK
     Route: 065
  10. PENTOXIFYLLINE. [Concomitant]
     Active Substance: PENTOXIFYLLINE
     Indication: ESCHERICHIA SEPSIS
  11. AMIKACIN. [Concomitant]
     Active Substance: AMIKACIN
     Indication: SEPSIS NEONATAL
  12. CEFTAZIDIME. [Suspect]
     Active Substance: CEFTAZIDIME
     Indication: ESCHERICHIA SEPSIS
  13. COLISTIN [Concomitant]
     Active Substance: COLISTIN
     Indication: SEPSIS NEONATAL
     Dosage: UNK
     Route: 016
  14. FLUCONAZOLE. [Suspect]
     Active Substance: FLUCONAZOLE
     Indication: ANTIBIOTIC THERAPY
     Dosage: UNK
     Route: 064
  15. ALBUMIN NOS [Concomitant]
     Indication: SEPSIS NEONATAL
     Dosage: UNK
     Route: 065
  16. MEROPENEM. [Suspect]
     Active Substance: MEROPENEM
     Indication: SEPSIS NEONATAL
     Dosage: UNK
     Route: 064
  17. COLISTIN [Concomitant]
     Active Substance: COLISTIN
     Indication: ESCHERICHIA SEPSIS
  18. PLATELETS [Concomitant]
     Active Substance: HUMAN PLATELET, ALLOGENIC
     Indication: ESCHERICHIA SEPSIS
     Dosage: UNK
     Route: 065
  19. CEFTAZIDIME. [Suspect]
     Active Substance: CEFTAZIDIME
     Indication: ANTIBIOTIC THERAPY
     Dosage: UNK
     Route: 064
  20. CEFTAZIDIME. [Suspect]
     Active Substance: CEFTAZIDIME
     Indication: SEPSIS NEONATAL
  21. FLUCONAZOLE. [Suspect]
     Active Substance: FLUCONAZOLE
     Indication: ESCHERICHIA SEPSIS

REACTIONS (5)
  - Blood lactate dehydrogenase increased [Unknown]
  - Hepatic function abnormal [Unknown]
  - Jaundice [Unknown]
  - Gamma-glutamyltransferase increased [Unknown]
  - Aspartate aminotransferase increased [Unknown]
